FAERS Safety Report 10591039 (Version 1)
Quarter: 2014Q4

REPORT INFORMATION
  Report Type: Report from Study
  Country: US (occurrence: US)
  Receive Date: 20141118
  Receipt Date: 20141118
  Transmission Date: 20150529
  Serious: Yes (Hospitalization, Other)
  Sender: FDA-Public Use
  Company Number: US-MYLANLABS-2014M1011093

PATIENT

DRUGS (7)
  1. PACLITAXEL. [Suspect]
     Active Substance: PACLITAXEL
     Indication: BREAST CANCER
     Dosage: 80 MG/M2, QW
     Route: 042
     Dates: start: 20090625, end: 20091007
  2. MULTIVITAMIN                       /00097801/ [Concomitant]
     Active Substance: VITAMINS
     Dosage: UNK
     Dates: start: 200904
  3. TYKERB [Suspect]
     Active Substance: LAPATINIB DITOSYLATE
     Indication: BREAST CANCER
     Dosage: 1000 MG, QD
     Route: 048
     Dates: start: 20090625, end: 20100622
  4. PROCHLORPERAZINE. [Concomitant]
     Active Substance: PROCHLORPERAZINE
     Dosage: UNK
     Dates: start: 20090825
  5. TRASTUZUMAB [Suspect]
     Active Substance: TRASTUZUMAB
     Indication: BREAST CANCER
     Dosage: 2 MG/KG, QW
     Route: 042
     Dates: start: 20090625, end: 20100602
  6. HYDROCODONE [Concomitant]
     Active Substance: HYDROCODONE
     Dosage: UNK
     Dates: start: 200904
  7. ALPRAZOLAM. [Concomitant]
     Active Substance: ALPRAZOLAM
     Dosage: UNK
     Dates: start: 200904

REACTIONS (1)
  - Oropharyngeal cancer [Recovered/Resolved]

NARRATIVE: CASE EVENT DATE: 20120203
